FAERS Safety Report 8144009-3 (Version None)
Quarter: 2012Q1

REPORT INFORMATION
  Report Type: 
  Country: None (occurrence: None)
  Receive Date: 20120217
  Receipt Date: 20120217
  Transmission Date: 20120608
  Serious: Yes (Hospitalization, Other)
  Sender: FDA-Public Use
  Company Number: None

PATIENT
  Sex: Female

DRUGS (6)
  1. JANUVIA [Concomitant]
     Route: 048
  2. ASPIRIN [Concomitant]
     Route: 048
  3. PRAVASTATIN [Concomitant]
     Route: 048
  4. CIPROFLOXACIN [Suspect]
     Indication: URINARY TRACT INFECTION
     Dosage: TWO TABLETS
     Route: 048
     Dates: start: 20120130, end: 20120205
  5. METFORMIN HCL [Concomitant]
     Route: 048
  6. SUPPLEMENTS [Concomitant]

REACTIONS (2)
  - FALL [None]
  - OSTEOARTHRITIS [None]
